FAERS Safety Report 15132165 (Version 1)
Quarter: 2018Q3

REPORT INFORMATION
  Report Type: Spontaneous
  Country: FR (occurrence: FR)
  Receive Date: 20180711
  Receipt Date: 20180711
  Transmission Date: 20181010
  Serious: Yes (Hospitalization, Disabling)
  Sender: FDA-Public Use
  Company Number: PHHY2017FR204201

PATIENT
  Age: 57 Year
  Sex: Female
  Weight: 85 kg

DRUGS (3)
  1. LEVOFLOXACIN. [Suspect]
     Active Substance: LEVOFLOXACIN
     Indication: BRONCHITIS
     Dosage: 2 DF, QD (1 TABLET IN MORNING AND 1 IN EVENING)
     Route: 048
     Dates: start: 20170314, end: 20170321
  2. BECLOSPIN [Concomitant]
     Active Substance: BECLOMETHASONE DIPROPIONATE
     Indication: BRONCHITIS
     Dosage: 2 DF, QD (STRENGTH: 800 MCG/2 ML)
     Route: 055
  3. MUCOMYSTENDO [Concomitant]
     Active Substance: ACETYLCYSTEINE
     Indication: BRONCHITIS
     Dosage: 1 DF, QD (STRENGTH: 1G/5 ML)
     Route: 055

REACTIONS (2)
  - Tendon rupture [Unknown]
  - Pain in extremity [Unknown]

NARRATIVE: CASE EVENT DATE: 20170324
